FAERS Safety Report 9728919 (Version 2)
Quarter: 2014Q1

REPORT INFORMATION
  Report Type: Spontaneous
  Country: FR (occurrence: FR)
  Receive Date: 20131204
  Receipt Date: 20140319
  Transmission Date: 20141002
  Serious: Yes (Death, Hospitalization)
  Sender: FDA-Public Use
  Company Number: FR-PFIZER INC-2013344775

PATIENT
  Age: 84 Year
  Sex: Male

DRUGS (1)
  1. CORDARONE [Suspect]
     Dosage: UNK
     Route: 048
     Dates: start: 2011, end: 20131118

REACTIONS (3)
  - Hepatitis cholestatic [Fatal]
  - Monocytosis [Fatal]
  - Malabsorption [Fatal]
